FAERS Safety Report 4892641-2 (Version None)
Quarter: 2006Q1

REPORT INFORMATION
  Report Type: 
  Country: None (occurrence: None)
  Receive Date: 20060125
  Receipt Date: 20060125
  Transmission Date: 20060701
  Serious: No
  Sender: FDA-Public Use
  Company Number: None

PATIENT
  Age: 70 Year
  Sex: Male

DRUGS (6)
  1. SIMVASTATIN [Suspect]
     Indication: HYPERLIPIDAEMIA
     Dosage: 80 MG PO HS
     Route: 048
     Dates: start: 20050911, end: 20050518
  2. GEMFIBROZIL [Suspect]
     Indication: HYPERLIPIDAEMIA
     Dosage: 600 MG BID BEFORE MEALS
     Dates: start: 20050125, end: 20050516
  3. FELODIPINE [Concomitant]
  4. NITROGLYCERIN [Concomitant]
  5. HCTZ 12.5 MG/LISINOPRIL [Concomitant]
  6. METOPROPOL SUCCINATE [Concomitant]

REACTIONS (6)
  - ASTHENIA [None]
  - BLOOD CREATINE PHOSPHOKINASE INCREASED [None]
  - BLOOD PHOSPHORUS INCREASED [None]
  - BRADYCARDIA [None]
  - CONSTIPATION [None]
  - RENAL FAILURE ACUTE [None]
